FAERS Safety Report 12185094 (Version 11)
Quarter: 2016Q4

REPORT INFORMATION
  Report Type: Report from Study
  Country: DE (occurrence: DE)
  Receive Date: 20160316
  Receipt Date: 20161014
  Transmission Date: 20170207
  Serious: Yes (Death, Hospitalization, Other)
  Sender: FDA-Public Use
  Company Number: PHHY2014DE081964

PATIENT
  Sex: Female
  Weight: 54.4 kg

DRUGS (4)
  1. AFINITOR [Suspect]
     Active Substance: EVEROLIMUS
     Indication: BREAST CANCER METASTATIC
     Dosage: 10 MG, QD
     Route: 048
     Dates: start: 20140206, end: 20150714
  2. BONDRONAT [Concomitant]
     Active Substance: IBANDRONIC ACID
     Indication: PRODUCT USED FOR UNKNOWN INDICATION
     Dosage: UNK, EVERY 4 WEEKS
     Route: 065
     Dates: start: 201401, end: 20151124
  3. CARBIMAZOLE [Concomitant]
     Active Substance: CARBIMAZOLE
     Indication: HYPERTHYROIDISM
     Dosage: 0.5 MG, UNK
     Route: 048
     Dates: start: 201309, end: 20150714
  4. EXEMESTAN 1 A PHARMA [Suspect]
     Active Substance: EXEMESTANE
     Indication: BREAST CANCER METASTATIC
     Dosage: 25 MG, QD
     Route: 048
     Dates: start: 20140206, end: 20150714

REACTIONS (28)
  - Weight decreased [Unknown]
  - Oedema [Unknown]
  - Malignant neoplasm progression [Fatal]
  - Renal impairment [Recovering/Resolving]
  - Onychoclasis [Recovered/Resolved]
  - Oedema peripheral [Recovered/Resolved]
  - Mucosal inflammation [Recovered/Resolved]
  - Lung disorder [Recovered/Resolved]
  - Lacrimation increased [Recovered/Resolved]
  - Pruritus [Recovered/Resolved]
  - Erythema [Recovered/Resolved]
  - Metastases to central nervous system [Fatal]
  - Vomiting [Unknown]
  - Stomatitis [Recovered/Resolved]
  - Angular cheilitis [Recovered/Resolved]
  - Alopecia [Recovered/Resolved with Sequelae]
  - Nausea [Unknown]
  - Alopecia [Unknown]
  - Sensory disturbance [Unknown]
  - Dizziness [Not Recovered/Not Resolved]
  - Eastern Cooperative Oncology Group performance status worsened [Recovered/Resolved]
  - Headache [Not Recovered/Not Resolved]
  - Visual impairment [Fatal]
  - Stomatitis [Unknown]
  - Eye pruritus [Recovered/Resolved]
  - Ocular hyperaemia [Recovered/Resolved]
  - Onychalgia [Recovered/Resolved]
  - Dysgeusia [Not Recovered/Not Resolved]

NARRATIVE: CASE EVENT DATE: 20140206
